FAERS Safety Report 16132144 (Version 4)
Quarter: 2019Q2

REPORT INFORMATION
  Report Type: Spontaneous
  Country: GB (occurrence: GB)
  Receive Date: 20190329
  Receipt Date: 20190624
  Transmission Date: 20190711
  Serious: Yes (Hospitalization, Other)
  Sender: FDA-Public Use
  Company Number: GB-ACCORD-115533

PATIENT
  Age: 65 Year
  Sex: Male

DRUGS (17)
  1. LANSOPRAZOLE. [Concomitant]
     Active Substance: LANSOPRAZOLE
  2. SIMVASTATIN. [Concomitant]
     Active Substance: SIMVASTATIN
     Dosage: AT NIGHT
  3. IRON [Concomitant]
     Active Substance: IRON
  4. ALENDRONATE SODIUM/ALENDRONIC ACID [Concomitant]
  5. ALLOPURINOL. [Suspect]
     Active Substance: ALLOPURINOL
     Indication: PRODUCT USED FOR UNKNOWN INDICATION
     Route: 048
  6. HYDROCORTISONE. [Concomitant]
     Active Substance: HYDROCORTISONE
     Route: 042
  7. WARFARIN [Concomitant]
     Active Substance: WARFARIN
     Dosage: AS PER INTERNATIONAL NORMALIZED RATIO.
  8. SENNA ALEXANDRINA [Concomitant]
     Active Substance: SENNA LEAF
     Dosage: NIGHT.
  9. CHLORPHENAMINE/CHLORPHENAMINE MALEATE/CHLORPHENAMINE RESINATE/CHLORPHENAMINE TANNATE [Concomitant]
     Route: 042
  10. COTRIMOXAZOLE [Concomitant]
     Active Substance: SULFAMETHOXAZOLE\TRIMETHOPRIM
     Dosage: MONDAY, WEDNESDAY AND FRIDAY TWICE A DAY.
  11. DUORESP SPIROMAX [Concomitant]
     Active Substance: BUDESONIDE\FORMOTEROL
     Dosage: 160/4.5
  12. AZATHIOPRINE. [Interacting]
     Active Substance: AZATHIOPRINE
     Indication: NEUROSARCOIDOSIS
     Route: 048
  13. METFORMIN [Concomitant]
     Active Substance: METFORMIN HYDROCHLORIDE
  14. INFLIXIMAB [Concomitant]
     Active Substance: INFLIXIMAB
  15. LEVETIRACETAM. [Concomitant]
     Active Substance: LEVETIRACETAM
  16. DOXAZOSIN [Concomitant]
     Active Substance: DOXAZOSIN\DOXAZOSIN MESYLATE
  17. ADCAL-D3 [Concomitant]
     Active Substance: CALCIUM CARBONATE\CHOLECALCIFEROL

REACTIONS (12)
  - Hypovolaemia [Unknown]
  - Acute kidney injury [Unknown]
  - Neutropenia [Unknown]
  - Sepsis [Unknown]
  - Labelled drug-drug interaction medication error [Unknown]
  - Cardiac arrest [Unknown]
  - Drug monitoring procedure incorrectly performed [Unknown]
  - Acidosis [Unknown]
  - Pulseless electrical activity [Unknown]
  - Cellulitis [Unknown]
  - Anaemia [Unknown]
  - Contraindicated product administered [Unknown]
